FAERS Safety Report 22160915 (Version 1)
Quarter: 2023Q1

REPORT INFORMATION
  Report Type: Spontaneous
  Country: US (occurrence: None)
  Receive Date: 20230331
  Receipt Date: 20230331
  Transmission Date: 20230418
  Serious: Yes (Life-Threatening, Hospitalization)
  Sender: FDA-Public Use
  Company Number: None

PATIENT
  Age: 60 Year
  Sex: Female

DRUGS (1)
  1. APIXABAN [Suspect]
     Active Substance: APIXABAN
     Dosage: FREQUENCY : TWICE A DAY;?
     Route: 048

REACTIONS (5)
  - Cerebral haemorrhage [None]
  - Therapy interrupted [None]
  - Intracranial aneurysm [None]
  - Cerebral mass effect [None]
  - Cerebral artery stenosis [None]

NARRATIVE: CASE EVENT DATE: 20220303
